FAERS Safety Report 26171731 (Version 1)
Quarter: 2025Q4

REPORT INFORMATION
  Report Type: Spontaneous
  Country: US (occurrence: US)
  Receive Date: 20251217
  Receipt Date: 20251217
  Transmission Date: 20260118
  Serious: No
  Sender: BRACCO
  Company Number: US-BRACCO-2025US07742

PATIENT
  Age: 30 Year
  Sex: Male
  Weight: 107 kg

DRUGS (1)
  1. VUEWAY [Suspect]
     Active Substance: GADOPICLENOL
     Indication: Magnetic resonance elastography
     Dosage: 13 ML, SINGLE
     Dates: start: 20251103, end: 20251103

REACTIONS (2)
  - Urticaria [Recovered/Resolved]
  - Increased dose administered [Unknown]

NARRATIVE: CASE EVENT DATE: 20251103
